FAERS Safety Report 5698650-8 (Version None)
Quarter: 2008Q2

REPORT INFORMATION
  Report Type: 
  Country: None (occurrence: None)
  Receive Date: 20080408
  Receipt Date: 20070131
  Transmission Date: 20081010
  Serious: No
  Sender: FDA-Public Use
  Company Number: US-BAYER-US-2007-003434

PATIENT
  Age: 54 Year
  Sex: Female
  Weight: 57 kg

DRUGS (2)
  1. CLIMARA [Suspect]
     Indication: MENOPAUSAL SYMPTOMS PROPHYLAXIS
     Route: 061
  2. SYNTHROID [Concomitant]

REACTIONS (1)
  - MIGRAINE [None]
